FAERS Safety Report 19665243 (Version 4)
Quarter: 2022Q2

REPORT INFORMATION
  Report Type: Spontaneous
  Country: US (occurrence: None)
  Receive Date: 20210805
  Receipt Date: 20220620
  Transmission Date: 20220721
  Serious: No
  Sender: FDA-Public Use
  Company Number: US-ROCHE-2817196

PATIENT
  Sex: Male

DRUGS (4)
  1. GAVRETO [Suspect]
     Active Substance: PRALSETINIB
     Indication: Thyroid cancer
     Route: 048
     Dates: start: 20201230
  2. GAVRETO [Suspect]
     Active Substance: PRALSETINIB
     Indication: Non-small cell lung cancer
     Route: 048
  3. GAVRETO [Suspect]
     Active Substance: PRALSETINIB
     Route: 048
  4. GAVRETO [Suspect]
     Active Substance: PRALSETINIB
     Route: 048
     Dates: start: 20210104

REACTIONS (3)
  - Platelet count decreased [Unknown]
  - Ageusia [Unknown]
  - Fatigue [Unknown]
